FAERS Safety Report 6009311-X (Version None)
Quarter: 2008Q4

REPORT INFORMATION
  Report Type: 
  Country: None (occurrence: None)
  Receive Date: 20081217
  Receipt Date: 20070322
  Transmission Date: 20090506
  Serious: Yes (Death, Hospitalization)
  Sender: FDA-Public Use
  Company Number: MX-GENENTECH-237339

PATIENT
  Sex: Male
  Weight: 60 kg

DRUGS (3)
  1. BEVACIZUMAB [Suspect]
     Indication: COLORECTAL CANCER METASTATIC
     Dosage: 430 MG, UNK
     Route: 042
     Dates: start: 20051208
  2. CAPECITABINE [Suspect]
     Indication: COLORECTAL CANCER METASTATIC
     Dates: start: 20051208, end: 20060720
  3. OXALIPLATIN [Suspect]
     Indication: COLORECTAL CANCER METASTATIC
     Dates: start: 20051208

REACTIONS (2)
  - DEATH [None]
  - RECTAL HAEMORRHAGE [None]
